FAERS Safety Report 11279120 (Version 1)
Quarter: 2015Q3

REPORT INFORMATION
  Report Type: Spontaneous
  Country: US (occurrence: US)
  Receive Date: 20150717
  Receipt Date: 20150717
  Transmission Date: 20151125
  Serious: No
  Sender: FDA-Public Use
  Company Number: US-MYLANLABS-2015M1010793

PATIENT
  Sex: Female
  Weight: 65.76 kg

DRUGS (3)
  1. ESTRADIOL TRANSDERMAL SYSTEM [Suspect]
     Active Substance: ESTRADIOL
     Dosage: 0.05 MG/DAY, CHANGE QWK
     Route: 062
     Dates: start: 201503
  2. ESTRADIOL TRANSDERMAL SYSTEM [Suspect]
     Active Substance: ESTRADIOL
     Indication: HORMONE REPLACEMENT THERAPY
     Dosage: 0.05 MG, QD, CHANGE TWICE WEEKLY
     Route: 062
     Dates: start: 201502, end: 201503
  3. PROGESTERONE. [Concomitant]
     Active Substance: PROGESTERONE
     Dosage: 100 MG, HS
     Route: 048

REACTIONS (4)
  - Alopecia [Not Recovered/Not Resolved]
  - Myalgia [Recovering/Resolving]
  - Feeling abnormal [Recovering/Resolving]
  - Arthralgia [Recovering/Resolving]
